FAERS Safety Report 9069428 (Version 2)
Quarter: 2013Q2

REPORT INFORMATION
  Report Type: Spontaneous
  Country: JP (occurrence: JP)
  Receive Date: 20130215
  Receipt Date: 20130619
  Transmission Date: 20140414
  Serious: Yes (Life-Threatening)
  Sender: FDA-Public Use
  Company Number: JP-AMGEN-JPNSP2013010717

PATIENT
  Age: 64 Year
  Sex: Male
  Weight: 59 kg

DRUGS (7)
  1. RANMARK [Suspect]
     Indication: PROSTATE CANCER
     Dosage: 120 MG, UNK
     Route: 058
     Dates: start: 20121219, end: 20121219
  2. RASENAZOLIN [Concomitant]
     Indication: URINARY TRACT INFECTION
     Route: 041
     Dates: start: 20121214, end: 20130103
  3. CALCIUM LACTATE [Concomitant]
     Indication: PROPHYLAXIS
     Route: 048
     Dates: start: 20121219, end: 20121219
  4. CALFINA [Concomitant]
     Indication: PROPHYLAXIS
     Route: 048
     Dates: start: 20121219, end: 20121219
  5. EFUMIN [Concomitant]
     Indication: PROSTATE CANCER
     Route: 048
     Dates: start: 20121219, end: 20130103
  6. LEUPLIN [Concomitant]
     Indication: PROSTATE CANCER
     Dosage: 1/DAY
     Route: 058
     Dates: start: 20121208
  7. ASPARA                             /00520101/ [Concomitant]

REACTIONS (1)
  - Hypocalcaemia [Recovering/Resolving]
